FAERS Safety Report 9440372 (Version 1)
Quarter: 2013Q3

REPORT INFORMATION
  Report Type: Report from Study
  Country: FR (occurrence: FR)
  Receive Date: 20130805
  Receipt Date: 20130805
  Transmission Date: 20140515
  Serious: Yes (Hospitalization)
  Sender: FDA-Public Use
  Company Number: FR-ELI_LILLY_AND_COMPANY-FR201304008090

PATIENT
  Age: 38 Year
  Sex: Male
  Weight: 55 kg

DRUGS (2)
  1. OLANZAPINE LONG-ACTING IM [Suspect]
     Indication: SCHIZOPHRENIA
     Dosage: 300 MG, EVERY 15 DAYS
     Route: 030
     Dates: start: 20111220, end: 20130411
  2. LOXAPINE [Concomitant]
     Indication: ANXIETY
     Dosage: UNK
     Dates: start: 20101021

REACTIONS (1)
  - Delirium [Recovered/Resolved]
